FAERS Safety Report 10261149 (Version 1)
Quarter: 2014Q2

REPORT INFORMATION
  Report Type: Spontaneous
  Country: US (occurrence: US)
  Receive Date: 20140626
  Receipt Date: 20140626
  Transmission Date: 20141212
  Serious: No
  Sender: FDA-Public Use
  Company Number: US-BAYER-2014-095846

PATIENT
  Age: 71 Year
  Sex: Male
  Weight: 97.51 kg

DRUGS (4)
  1. ALEVE TABLET [Suspect]
     Indication: ARTHRITIS
     Dosage: 1 DF, PRN
     Route: 048
     Dates: start: 2006, end: 201406
  2. ALEVE CAPLET [Suspect]
     Indication: ARTHRITIS
     Dosage: 1 DF, PRN
     Route: 048
     Dates: start: 2006, end: 201406
  3. PREDNISONE [Concomitant]
  4. SIMVASTATIN [Concomitant]

REACTIONS (2)
  - Drug ineffective [None]
  - Blood pressure increased [Recovered/Resolved]
